FAERS Safety Report 15046431 (Version 2)
Quarter: 2018Q3

REPORT INFORMATION
  Report Type: Report from Study
  Country: US (occurrence: US)
  Receive Date: 20180621
  Receipt Date: 20180723
  Transmission Date: 20181010
  Serious: Yes (Hospitalization)
  Sender: FDA-Public Use
  Company Number: US-ACTELION-A-US2018-173858

PATIENT
  Age: 45 Year
  Sex: Female

DRUGS (15)
  1. FLEXERIL [Concomitant]
     Active Substance: CYCLOBENZAPRINE HYDROCHLORIDE
     Dosage: 10 MG, QD
     Dates: start: 2011
  2. LASIX [Concomitant]
     Active Substance: FUROSEMIDE
     Dosage: 80 MG, TID
     Dates: start: 201512
  3. MERCAPTOPURINE. [Concomitant]
     Active Substance: MERCAPTOPURINE
     Dosage: 50 MG, BID
     Dates: start: 20180610
  4. CLONAZEPAM. [Concomitant]
     Active Substance: CLONAZEPAM
  5. LYRICA [Concomitant]
     Active Substance: PREGABALIN
     Dosage: 75 MG, BID
     Dates: start: 2011
  6. OPSUMIT [Suspect]
     Active Substance: MACITENTAN
     Indication: PULMONARY ARTERIAL HYPERTENSION
     Dosage: 10 MG, QD
     Route: 048
     Dates: start: 20180525
  7. SILDENAFIL. [Concomitant]
     Active Substance: SILDENAFIL
  8. POTASSIUM CHLORIDE. [Concomitant]
     Active Substance: POTASSIUM CHLORIDE
  9. CELEBREX [Concomitant]
     Active Substance: CELECOXIB
     Dosage: 200 MG, BID
     Dates: start: 2010, end: 20180601
  10. MERCAPTOPURINE. [Concomitant]
     Active Substance: MERCAPTOPURINE
     Dosage: 50 MG, BID
     Dates: start: 2012, end: 20180601
  11. MIRENA [Concomitant]
     Active Substance: LEVONORGESTREL
     Dosage: UNK
     Dates: start: 201604
  12. HYDROCODONE BITARTRATE AND ACETAMINOPHEN [Concomitant]
     Active Substance: ACETAMINOPHEN\HYDROCODONE BITARTRATE
  13. PROZAC [Concomitant]
     Active Substance: FLUOXETINE HYDROCHLORIDE
  14. REMODULIN [Concomitant]
     Active Substance: TREPROSTINIL
  15. HYDROCODONE [Concomitant]
     Active Substance: HYDROCODONE
     Dosage: 1 PILL BID AND 1/2 PILL QD
     Dates: start: 2010

REACTIONS (5)
  - Pneumonia parainfluenzae viral [Unknown]
  - Parainfluenzae virus infection [Unknown]
  - Pyrexia [Unknown]
  - White blood cell count decreased [Recovering/Resolving]
  - Pulmonary congestion [Unknown]

NARRATIVE: CASE EVENT DATE: 20180601
